FAERS Safety Report 6442765-3 (Version None)
Quarter: 2009Q4

REPORT INFORMATION
  Report Type: 
  Country: None (occurrence: None)
  Receive Date: 20091117
  Receipt Date: 20091110
  Transmission Date: 20100525
  Serious: Yes (Other)
  Sender: FDA-Public Use
  Company Number: CA-WYE-G04859009

PATIENT
  Age: 59 Year
  Sex: Male

DRUGS (2)
  1. EFFEXOR XR [Suspect]
     Route: 048
     Dates: start: 20090801
  2. DESYREL [Concomitant]
     Indication: SLEEP DISORDER
     Dosage: UNKNOWN
     Route: 048
     Dates: start: 20091001

REACTIONS (1)
  - PANCREATIC INSUFFICIENCY [None]
